FAERS Safety Report 8103399-8 (Version None)
Quarter: 2012Q1

REPORT INFORMATION
  Report Type: 
  Country: None (occurrence: None)
  Receive Date: 20120201
  Receipt Date: 20120125
  Transmission Date: 20120608
  Serious: Yes (Hospitalization, Other)
  Sender: FDA-Public Use
  Company Number: US-SANOFI-AVENTIS-2012SA005343

PATIENT
  Age: 77 Year
  Sex: Female
  Weight: 62.59 kg

DRUGS (15)
  1. ASPIRIN [Suspect]
     Dates: start: 20101001, end: 20110630
  2. ASPIRIN [Suspect]
     Dates: start: 20110701
  3. PLAVIX [Suspect]
     Route: 048
     Dates: start: 20110701
  4. METOPROLOL TARTRATE [Concomitant]
     Dates: start: 20110101
  5. AMLODIPINE [Concomitant]
  6. PLAVIX [Suspect]
     Route: 048
     Dates: start: 20110701
  7. LIPITOR [Concomitant]
     Dates: end: 20110901
  8. METOPROLOL TARTRATE [Concomitant]
     Dates: end: 20110101
  9. PRAVASTATIN [Concomitant]
     Dates: start: 20111101
  10. LISINOPRIL [Concomitant]
  11. PLAVIX [Suspect]
     Indication: STENT PLACEMENT
     Route: 048
     Dates: start: 20101017, end: 20110630
  12. ATENOLOL [Concomitant]
     Dosage: SCHEDULED DAILY PATIENTS TAKES DOSE MWF
     Dates: start: 20111101
  13. PLAVIX [Suspect]
     Route: 048
     Dates: start: 20101017, end: 20110630
  14. ASPIRIN [Suspect]
     Indication: STENT PLACEMENT
     Dates: start: 20101001, end: 20110630
  15. ASPIRIN [Suspect]
     Dates: start: 20110701

REACTIONS (15)
  - FATIGUE [None]
  - GLOMERULAR FILTRATION RATE DECREASED [None]
  - EPISTAXIS [None]
  - CORONARY ARTERY OCCLUSION [None]
  - HEART INJURY [None]
  - MUSCLE SPASMS [None]
  - OEDEMA [None]
  - WEIGHT INCREASED [None]
  - CARDIAC FAILURE CONGESTIVE [None]
  - DYSGEUSIA [None]
  - BLOOD SODIUM DECREASED [None]
  - RECTAL HAEMORRHAGE [None]
  - GINGIVAL BLEEDING [None]
  - HEART RATE DECREASED [None]
  - BODY HEIGHT DECREASED [None]
